FAERS Safety Report 25211722 (Version 7)
Quarter: 2025Q3

REPORT INFORMATION
  Report Type: Report from Study
  Country: GB (occurrence: GB)
  Receive Date: 20250418
  Receipt Date: 20250815
  Transmission Date: 20251021
  Serious: Yes (Hospitalization, Other)
  Sender: TAKEDA
  Company Number: GB-TAKEDA-2025TUS037351

PATIENT
  Sex: Female

DRUGS (2)
  1. VEDOLIZUMAB [Suspect]
     Active Substance: VEDOLIZUMAB
     Indication: Crohn^s disease
     Dosage: 108 MILLIGRAM, Q2WEEKS
     Dates: start: 20250101
  2. VEDOLIZUMAB [Suspect]
     Active Substance: VEDOLIZUMAB

REACTIONS (8)
  - Groin pain [Unknown]
  - Parkinson^s disease [Unknown]
  - Lower respiratory tract infection [Unknown]
  - Arthralgia [Unknown]
  - Arthritis [Unknown]
  - Asthma [Not Recovered/Not Resolved]
  - Malaise [Unknown]
  - Nasopharyngitis [Not Recovered/Not Resolved]
